FAERS Safety Report 11741283 (Version 3)
Quarter: 2016Q2

REPORT INFORMATION
  Report Type: Report from Study
  Country: US (occurrence: US)
  Receive Date: 20151116
  Receipt Date: 20160517
  Transmission Date: 20160815
  Serious: Yes (Other)
  Sender: FDA-Public Use
  Company Number: US-ALEXION PHARMACEUTICALS INC-A201504459

PATIENT
  Age: 37 Year
  Sex: Male

DRUGS (1)
  1. SOLIRIS [Suspect]
     Active Substance: ECULIZUMAB
     Indication: PAROXYSMAL NOCTURNAL HAEMOGLOBINURIA
     Dosage: 900 MG, Q2W
     Route: 042
     Dates: start: 20150415, end: 20160509

REACTIONS (8)
  - Renal haemorrhage [Not Recovered/Not Resolved]
  - Myalgia [Not Recovered/Not Resolved]
  - Scoliosis [Not Recovered/Not Resolved]
  - Bone pain [Not Recovered/Not Resolved]
  - Back pain [Not Recovered/Not Resolved]
  - Asthenia [Unknown]
  - Rectal haemorrhage [Not Recovered/Not Resolved]
  - Gastrointestinal fungal infection [Not Recovered/Not Resolved]

NARRATIVE: CASE EVENT DATE: 20151106
